FAERS Safety Report 5125971-X (Version None)
Quarter: 2006Q4

REPORT INFORMATION
  Report Type: 
  Country: None (occurrence: None)
  Receive Date: 20061010
  Receipt Date: 20061010
  Transmission Date: 20070319
  Serious: No
  Sender: FDA-Public Use
  Company Number: None

PATIENT
  Age: 75 Year
  Sex: Male
  Weight: 68.0396 kg

DRUGS (10)
  1. CLONIDINE [Suspect]
     Indication: HYPERTENSION
     Dosage: .3 MG QID ORALLY
     Route: 048
     Dates: start: 20061001
  2. DILTIAZEM HCL [Concomitant]
  3. RANITADINE [Concomitant]
  4. ZERTEC [Concomitant]
  5. ASCORBIC ACID [Concomitant]
  6. HUMULIN N [Concomitant]
  7. LOPERAMIDE [Concomitant]
  8. RENAGEL [Concomitant]
  9. MUPERICIN [Concomitant]
  10. TRIAMCINALONE CM [Concomitant]

REACTIONS (1)
  - BLOOD PRESSURE SYSTOLIC INCREASED [None]
